FAERS Safety Report 7391953-0 (Version None)
Quarter: 2011Q1

REPORT INFORMATION
  Report Type: 
  Country: None (occurrence: None)
  Receive Date: 20110301
  Receipt Date: 20091210
  Transmission Date: 20110831
  Serious: Yes (Disabling, Other)
  Sender: FDA-Public Use
  Company Number: ALA_00950_2010

PATIENT
  Sex: Female

DRUGS (3)
  1. REGLAN [Suspect]
     Indication: ABDOMINAL PAIN
     Dosage: DF ORAL
     Route: 048
     Dates: start: 20060101, end: 20080401
  2. REGLAN [Suspect]
     Indication: DYSKINESIA
     Dosage: DF ORAL
     Route: 048
     Dates: start: 20060101, end: 20080401
  3. REGLAN [Suspect]
     Indication: INCORRECT DRUG ADMINISTRATION DURATION
     Dosage: DF ORAL
     Route: 048
     Dates: start: 20060101, end: 20080401

REACTIONS (3)
  - DYSKINESIA [None]
  - INCORRECT DRUG ADMINISTRATION DURATION [None]
  - TARDIVE DYSKINESIA [None]
